FAERS Safety Report 11094980 (Version 1)
Quarter: 2015Q2

REPORT INFORMATION
  Report Type: Spontaneous
  Country: PL (occurrence: PL)
  Receive Date: 20150506
  Receipt Date: 20150506
  Transmission Date: 20150821
  Serious: Yes (Other)
  Sender: FDA-Public Use
  Company Number: PL-JNJFOC-20150500088

PATIENT

DRUGS (1)
  1. INFLIXIMAB, RECOMBINANT [Suspect]
     Active Substance: INFLIXIMAB
     Indication: CROHN^S DISEASE
     Dosage: 0,2,6 AND EVERY 8 WEEKS
     Route: 042

REACTIONS (4)
  - Herpes simplex [Unknown]
  - Drug effect decreased [Unknown]
  - Epstein-Barr virus infection [Unknown]
  - Varicella [Unknown]
